FAERS Safety Report 8514292-0 (Version None)
Quarter: 2012Q3

REPORT INFORMATION
  Report Type: 
  Country: None (occurrence: None)
  Receive Date: 20120717
  Receipt Date: 20120713
  Transmission Date: 20120928
  Serious: Yes (Death, Other)
  Sender: FDA-Public Use
  Company Number: US-JNJFOC-20120613204

PATIENT

DRUGS (6)
  1. PREDNISONE [Suspect]
     Indication: DIFFUSE LARGE B-CELL LYMPHOMA
     Dosage: EVERY 21 DAYS FOR A MAXIMUM OF 8 CYCLES
     Route: 065
  2. VINCRISTINE [Suspect]
     Indication: DIFFUSE LARGE B-CELL LYMPHOMA
     Dosage: EVERY 21 DAYS FOR A MAXIMUM OF 8 CYCLES
     Route: 065
  3. BEVACIZUMAB [Suspect]
     Indication: DIFFUSE LARGE B-CELL LYMPHOMA
     Dosage: ON DAY 1, EVERY 21 DAYS FOR A MAXIMUM OF 8 CYCLES
     Route: 065
  4. RITUXAN [Suspect]
     Indication: DIFFUSE LARGE B-CELL LYMPHOMA
     Dosage: EVERY 21 DAYS FOR A MAXIMUM OF 8 CYCLES
     Route: 065
  5. DOXORUBICIN HCL [Suspect]
     Indication: DIFFUSE LARGE B-CELL LYMPHOMA
     Dosage: EVERY 21 DAYS FOR A MAXIMUM OF 8 CYCLES
     Route: 042
  6. CYCLOPHOSPHAMIDE [Suspect]
     Indication: DIFFUSE LARGE B-CELL LYMPHOMA
     Dosage: EVERY 21 DAYS FOR A MAXIMUM OF 8 CYCLES
     Route: 065

REACTIONS (6)
  - SUDDEN DEATH [None]
  - THROMBOSIS [None]
  - HYPERTENSION [None]
  - BLOOD DISORDER [None]
  - LEFT VENTRICULAR DYSFUNCTION [None]
  - GASTROINTESTINAL PERFORATION [None]
